FAERS Safety Report 10089022 (Version 1)
Quarter: 2014Q2

REPORT INFORMATION
  Report Type: Spontaneous
  Country: ES (occurrence: ES)
  Receive Date: 20140421
  Receipt Date: 20140421
  Transmission Date: 20141212
  Serious: Yes (Life-Threatening, Hospitalization, Other)
  Sender: FDA-Public Use
  Company Number: ES-009507513-1404ESP009681

PATIENT
  Age: 79 Year
  Sex: Female

DRUGS (7)
  1. EFFICIB [Suspect]
     Indication: DIABETES MELLITUS
     Dosage: 50/1000 MG, ONE TABLET IN THE MORNING AND ONE TABLET AT NIGHT
     Route: 048
     Dates: start: 20140128, end: 20140209
  2. ALDACTONE (SPIRONOLACTONE) [Suspect]
     Indication: CARDIAC FAILURE CONGESTIVE
     Dosage: 100 MG, QAM
     Route: 048
     Dates: start: 20140204, end: 20140209
  3. EMCONCOR [Suspect]
     Indication: CARDIAC FAILURE CONGESTIVE
     Dosage: 5 MG, QAM
     Route: 048
     Dates: start: 20140128, end: 20140209
  4. ENALAPRIL MALEATE [Suspect]
     Indication: HYPERTENSION
     Dosage: ONE DOSAGE FORM IN THE MORNING AND ONE DOSAGE FORM AT NIGHT
     Dates: start: 2010, end: 20140209
  5. SINTROM [Concomitant]
     Indication: CARDIAC VALVE PROSTHESIS USER
     Dosage: UNK
     Route: 048
  6. TERPOSEN [Concomitant]
     Indication: PROPHYLAXIS AGAINST GASTROINTESTINAL ULCER
     Dosage: 150 MG, QD
     Route: 048
     Dates: start: 20140128, end: 20140209
  7. DIGOXIN [Concomitant]
     Indication: ATRIAL FIBRILLATION
     Dosage: 0.25 MG AS INCLUDING DECIMEL IT EXCEEDS 3 DIGITS
     Dates: start: 20130730, end: 20140209

REACTIONS (5)
  - Cardiogenic shock [Recovered/Resolved]
  - Hyperkalaemia [Recovered/Resolved]
  - Lactic acidosis [Recovered/Resolved]
  - Renal failure [Recovering/Resolving]
  - Ischaemic hepatitis [Recovering/Resolving]
